FAERS Safety Report 23508800 (Version 1)
Quarter: 2024Q1

REPORT INFORMATION
  Report Type: Spontaneous
  Country: US (occurrence: US)
  Receive Date: 20240209
  Receipt Date: 20240209
  Transmission Date: 20240410
  Serious: Yes (Other)
  Sender: FDA-Public Use
  Company Number: US-002147023-NVSC2024US026167

PATIENT
  Sex: Female

DRUGS (7)
  1. CLOFAZIMINE [Suspect]
     Active Substance: CLOFAZIMINE
     Indication: Mycobacterium abscessus infection
     Dosage: 100 MG, QD
     Route: 065
     Dates: start: 20231101
  2. CIPROFLOXACIN [Suspect]
     Active Substance: CIPROFLOXACIN
     Indication: Product used for unknown indication
     Dosage: UNK
     Route: 065
  3. IMIPENEM [Suspect]
     Active Substance: IMIPENEM
     Indication: Product used for unknown indication
     Dosage: UNK
     Route: 065
  4. SULFAMETHOXAZOLE\TRIMETHOPRIM [Suspect]
     Active Substance: SULFAMETHOXAZOLE\TRIMETHOPRIM
     Indication: Product used for unknown indication
     Dosage: UNK
     Route: 065
  5. MOXIFLOXACIN [Suspect]
     Active Substance: MOXIFLOXACIN
     Indication: Product used for unknown indication
     Dosage: UNK
     Route: 065
  6. LINEZOLID [Concomitant]
     Active Substance: LINEZOLID
     Indication: Product used for unknown indication
     Dosage: 600 MG (DAILY)
     Route: 065
     Dates: start: 20230614
  7. OMADACYCLINE [Concomitant]
     Active Substance: OMADACYCLINE
     Indication: Product used for unknown indication
     Dosage: 300 MG (DAILY)
     Route: 065
     Dates: start: 20231213

REACTIONS (2)
  - Psoas abscess [Unknown]
  - Drug resistance [Unknown]
